FAERS Safety Report 9422506 (Version 2)
Quarter: 2013Q3

REPORT INFORMATION
  Report Type: Spontaneous
  Country: US (occurrence: US)
  Receive Date: 20130726
  Receipt Date: 20130806
  Transmission Date: 20140515
  Serious: No
  Sender: FDA-Public Use
  Company Number: US-009507513-1306USA012164

PATIENT
  Age: 7 Month
  Sex: 0

DRUGS (2)
  1. COPPERTONE WATER BABIES PURE + SIMPLE LOTION SPF 50 [Suspect]
     Indication: PRODUCT USED FOR UNKNOWN INDICATION
     Dosage: UNK, UNKNOWN
     Route: 061
  2. COPPERTONE WATER BABIES PURE + SIMPLE LOTION SPF 50 [Suspect]
     Dosage: UNK
     Route: 061

REACTIONS (4)
  - Malaise [Unknown]
  - Crying [Unknown]
  - Application site discolouration [Unknown]
  - Accidental exposure to product [Unknown]
